FAERS Safety Report 6344132-X (Version None)
Quarter: 2009Q3

REPORT INFORMATION
  Report Type: 
  Country: None (occurrence: None)
  Receive Date: 20090908
  Receipt Date: 20090903
  Transmission Date: 20100115
  Serious: Yes (Other)
  Sender: FDA-Public Use
  Company Number: US-BRISTOL-MYERS SQUIBB COMPANY-14766612

PATIENT
  Age: 52 Year
  Sex: Female
  Weight: 48 kg

DRUGS (3)
  1. IXEMPRA KIT [Suspect]
     Indication: BREAST CANCER METASTATIC
     Dates: start: 20080901
  2. XELODA [Suspect]
     Indication: BREAST CANCER METASTATIC
     Dates: start: 20090901
  3. RINGERS SOLUTION, LACTATED [Concomitant]
     Indication: PREMEDICATION

REACTIONS (3)
  - LONG THORACIC NERVE PALSY [None]
  - NEUROPATHY PERIPHERAL [None]
  - VOCAL CORD PARALYSIS [None]
